FAERS Safety Report 15762301 (Version 1)
Quarter: 2018Q4

REPORT INFORMATION
  Report Type: Spontaneous
  Country: US (occurrence: US)
  Receive Date: 20181226
  Receipt Date: 20181226
  Transmission Date: 20190205
  Serious: Yes (Death, Hospitalization, Other)
  Sender: FDA-Public Use
  Company Number: US-ASTRAZENECA-2018SF69845

PATIENT
  Age: 71 Year
  Sex: Female

DRUGS (4)
  1. SEROQUEL [Suspect]
     Active Substance: QUETIAPINE FUMARATE
     Indication: PRODUCT USED FOR UNKNOWN INDICATION
     Route: 048
     Dates: start: 2018
  2. ATIVAN [Concomitant]
     Active Substance: LORAZEPAM
  3. TOPAMAX [Concomitant]
     Active Substance: TOPIRAMATE
  4. ASA [Concomitant]
     Active Substance: ASPIRIN

REACTIONS (6)
  - Death [Fatal]
  - Urinary tract infection [Unknown]
  - Alopecia [Not Recovered/Not Resolved]
  - Hallucination [Fatal]
  - Humerus fracture [Recovered/Resolved]
  - Fall [Recovered/Resolved]

NARRATIVE: CASE EVENT DATE: 20171013
